FAERS Safety Report 6900396-2 (Version None)
Quarter: 2010Q3

REPORT INFORMATION
  Report Type: 
  Country: None (occurrence: None)
  Receive Date: 20100803
  Receipt Date: 20100726
  Transmission Date: 20110219
  Serious: Yes (Other)
  Sender: FDA-Public Use
  Company Number: PHHY2010CA48893

PATIENT
  Age: 30 Year
  Sex: Female

DRUGS (2)
  1. TRILEPTAL [Suspect]
     Indication: EPILEPSY
     Dosage: 300 MG, BID
     Dates: start: 20100531
  2. TRILEPTAL [Suspect]
     Dosage: 450 MG, BID

REACTIONS (3)
  - ACCOMMODATION DISORDER [None]
  - DIPLOPIA [None]
  - VISION BLURRED [None]
